FAERS Safety Report 5034788-6 (Version None)
Quarter: 2006Q2

REPORT INFORMATION
  Report Type: 
  Country: None (occurrence: None)
  Receive Date: 20060509
  Receipt Date: 20051121
  Transmission Date: 20061013
  Serious: Yes (Other)
  Sender: FDA-Public Use
  Company Number: US200511002275

PATIENT
  Age: 63 Year
  Sex: Female

DRUGS (9)
  1. PROZAC [Suspect]
     Indication: DEPRESSION
     Dates: start: 20051001
  2. PAXIL [Concomitant]
  3. PAROXETINE HCL [Concomitant]
  4. TAMOXIFEN CITRATE [Concomitant]
  5. ZOLPIDEM TARTRATE [Concomitant]
  6. VALSARTAN [Concomitant]
  7. LEVOTHYROXINE SODIUM [Concomitant]
  8. DILTIAZEM HYDROCHLORIDE [Concomitant]
  9. HYDROCODONE (HYDROCODONE) [Concomitant]

REACTIONS (1)
  - HALLUCINATION [None]
